FAERS Safety Report 14208284 (Version 1)
Quarter: 2017Q4

REPORT INFORMATION
  Report Type: Spontaneous
  Country: US (occurrence: US)
  Receive Date: 20171121
  Receipt Date: 20171121
  Transmission Date: 20180321
  Serious: Yes (Other)
  Sender: FDA-Public Use
  Company Number: None

PATIENT
  Age: 74 Year
  Sex: Male
  Weight: 81 kg

DRUGS (5)
  1. HYDROCODONE/ACETAMINOPHEN 10/325 [Suspect]
     Active Substance: ACETAMINOPHEN\HYDROCODONE
     Indication: BACK PAIN
     Route: 048
     Dates: start: 20131015, end: 20170918
  2. FISH OIL [Concomitant]
     Active Substance: FISH OIL
  3. EXFORGE [Concomitant]
     Active Substance: AMLODIPINE BESYLATE\VALSARTAN
  4. VITAMIN C [Concomitant]
     Active Substance: ASCORBIC ACID
  5. MULTIVITAMIN/MINERAL [Concomitant]

REACTIONS (4)
  - Tinnitus [None]
  - Product use issue [None]
  - Deafness neurosensory [None]
  - Deafness bilateral [None]

NARRATIVE: CASE EVENT DATE: 20171015
